FAERS Safety Report 4778414-X (Version None)
Quarter: 2005Q3

REPORT INFORMATION
  Report Type: 
  Country: None (occurrence: None)
  Receive Date: 20050926
  Receipt Date: 20050920
  Transmission Date: 20060218
  Serious: Yes (Death, Life-Threatening, Hospitalization)
  Sender: FDA-Public Use
  Company Number: JP-JNJFOC-20050505698

PATIENT
  Sex: Female
  Weight: 72.3 kg

DRUGS (4)
  1. CRAVIT [Suspect]
     Route: 048
     Dates: start: 20050425, end: 20050426
  2. LIPITOR [Suspect]
     Indication: HYPERLIPIDAEMIA
     Route: 048
  3. PL [Concomitant]
     Route: 048
  4. TRANSAMIN [Concomitant]
     Route: 048

REACTIONS (5)
  - DEATH [None]
  - DRUG ERUPTION [None]
  - PANCYTOPENIA [None]
  - RENAL FAILURE ACUTE [None]
  - RHABDOMYOLYSIS [None]
